FAERS Safety Report 7928826-8 (Version None)
Quarter: 2011Q4

REPORT INFORMATION
  Report Type: 
  Country: None (occurrence: None)
  Receive Date: 20111118
  Receipt Date: 20111118
  Transmission Date: 20120403
  Serious: Yes (Hospitalization)
  Sender: FDA-Public Use
  Company Number: DK-ROCHE-794082

PATIENT
  Sex: Male
  Weight: 52 kg

DRUGS (18)
  1. CYCLOPHOSPHAMIDE [Suspect]
     Dosage: DISCONTINUED PERMANENTLY
     Route: 042
  2. DOXORUBICIN HCL [Suspect]
     Indication: DIFFUSE LARGE B-CELL LYMPHOMA
     Dosage: LAST DOSE PRIOR SAE: 18 JULY 2011
     Route: 042
  3. MABTHERA [Suspect]
     Indication: DIFFUSE LARGE B-CELL LYMPHOMA
     Dosage: LAST DOSE PRIOR SAE: 18 JULY 2011.
     Route: 042
  4. PREDNISONE TAB [Suspect]
     Dosage: DISCONTINUED PERMANENTLY
     Route: 048
  5. MABTHERA [Suspect]
     Dosage: LAST DOSE PRIOR TO SAE: 03 AUGUST 2011
     Route: 042
  6. PREDNISONE TAB [Suspect]
     Indication: DIFFUSE LARGE B-CELL LYMPHOMA
     Dosage: LAST DOSE PRIOR SAE: 22 JULY 2011
     Route: 048
  7. VINCRISTINE [Suspect]
     Dosage: LAST DOSE PRIOR TO SAE: 03 AUGUST 2011
     Route: 042
  8. PREDNISONE TAB [Suspect]
     Dosage: LAST DOSE PRIOR TO SAE: 07 AUGUST 2011
     Route: 048
  9. VINCRISTINE [Suspect]
     Dosage: DISCONTINUED PERMANENTLY
     Route: 042
  10. FILGRASTIM [Suspect]
     Indication: DIFFUSE LARGE B-CELL LYMPHOMA
     Dosage: LAST DOSE PRIOR SAE: 20 JULY 2011
     Route: 058
  11. FILGRASTIM [Suspect]
     Dosage: LAST DOSE PRIOR TO SAE: 04 AUGUST 2011
     Route: 058
  12. DOXORUBICIN HCL [Suspect]
     Dosage: LAST DOSE PRIOR TO SAE: 03 AUGUST 2011
     Route: 042
  13. MABTHERA [Suspect]
     Dosage: DISCONTINUED PERMANENTLY
     Route: 042
  14. CYCLOPHOSPHAMIDE [Suspect]
     Dosage: LAST DOSE PRIOR TO SAE: 03 AUGUST 2011
     Route: 042
  15. VINCRISTINE [Suspect]
     Indication: DIFFUSE LARGE B-CELL LYMPHOMA
     Dosage: LAST DOSE PRIOR SAE: 18 JULY 2011
     Route: 042
  16. FILGRASTIM [Suspect]
     Dosage: DISCONTINUED PERMANENTLY
     Route: 058
  17. CYCLOPHOSPHAMIDE [Suspect]
     Indication: DIFFUSE LARGE B-CELL LYMPHOMA
     Dosage: LAST DOSE PRIOR SAE: 18 JULY 2011
     Route: 042
  18. DOXORUBICIN HCL [Suspect]
     Dosage: DISCONTINUED PERMANENTLY
     Route: 042

REACTIONS (4)
  - DIARRHOEA [None]
  - WEIGHT DECREASED [None]
  - STOMATITIS [None]
  - FEBRILE NEUTROPENIA [None]
